FAERS Safety Report 8835383 (Version 1)
Quarter: 2012Q4

REPORT INFORMATION
  Report Type: 
  Country: CO (occurrence: CO)
  Receive Date: 20121011
  Receipt Date: 20121011
  Transmission Date: 20130627
  Serious: Yes (Other)
  Sender: FDA-Public Use
  Company Number: CO-JNJFOC-20121005834

PATIENT
  Sex: Male

DRUGS (1)
  1. TOPAMAC [Suspect]
     Indication: EPILEPSY
     Route: 048

REACTIONS (3)
  - Myoclonus [Unknown]
  - Drug prescribing error [Unknown]
  - Incorrect dose administered [Unknown]
